FAERS Safety Report 22602974 (Version 3)
Quarter: 2025Q2

REPORT INFORMATION
  Report Type: Spontaneous
  Country: JP (occurrence: JP)
  Receive Date: 20230615
  Receipt Date: 20250614
  Transmission Date: 20250717
  Serious: Yes (Hospitalization, Other)
  Sender: UNITED THERAPEUTICS
  Company Number: JP-UNITED THERAPEUTICS-UNT-2021-020790

PATIENT
  Age: 5 Year
  Sex: Male
  Weight: 15.9 kg

DRUGS (36)
  1. UNITUXIN [Suspect]
     Active Substance: DINUTUXIMAB
     Indication: Neuroblastoma
     Route: 041
     Dates: start: 20211011, end: 20211011
  2. UNITUXIN [Suspect]
     Active Substance: DINUTUXIMAB
     Route: 041
     Dates: start: 20211116, end: 20211119
  3. UNITUXIN [Suspect]
     Active Substance: DINUTUXIMAB
     Route: 041
     Dates: start: 20211213, end: 20211216
  4. UNITUXIN [Suspect]
     Active Substance: DINUTUXIMAB
     Route: 041
     Dates: start: 20220118, end: 20220120
  5. UNITUXIN [Suspect]
     Active Substance: DINUTUXIMAB
     Route: 041
     Dates: start: 20220214, end: 20220217
  6. UNITUXIN [Suspect]
     Active Substance: DINUTUXIMAB
     Route: 041
     Dates: start: 20220322, end: 20220325
  7. MORPHINE HYDROCHLORIDE [Suspect]
     Active Substance: MORPHINE HYDROCHLORIDE
     Indication: Pain prophylaxis
     Route: 041
     Dates: start: 20211011, end: 20211015
  8. TECELEUKIN [Suspect]
     Active Substance: TECELEUKIN
     Indication: Neuroblastoma
     Dates: start: 20211109, end: 20211110
  9. TECELEUKIN [Suspect]
     Active Substance: TECELEUKIN
     Dates: start: 20211111, end: 20211111
  10. TECELEUKIN [Suspect]
     Active Substance: TECELEUKIN
     Dates: start: 20211112, end: 20211112
  11. TECELEUKIN [Suspect]
     Active Substance: TECELEUKIN
     Dates: start: 20211116, end: 20211116
  12. TECELEUKIN [Suspect]
     Active Substance: TECELEUKIN
     Dates: start: 20211117, end: 20211117
  13. TECELEUKIN [Suspect]
     Active Substance: TECELEUKIN
     Dates: start: 20220111, end: 20220114
  14. TECELEUKIN [Suspect]
     Active Substance: TECELEUKIN
     Dates: start: 20220118, end: 20220121
  15. TECELEUKIN [Suspect]
     Active Substance: TECELEUKIN
     Dates: start: 20220315, end: 20220318
  16. TECELEUKIN [Suspect]
     Active Substance: TECELEUKIN
     Dates: start: 20220322, end: 20220325
  17. FILGRASTIM [Suspect]
     Active Substance: FILGRASTIM
     Indication: Neuroblastoma
     Dates: start: 20211008, end: 20211011
  18. FILGRASTIM [Suspect]
     Active Substance: FILGRASTIM
     Dates: start: 20211210, end: 20211220
  19. FILGRASTIM [Suspect]
     Active Substance: FILGRASTIM
     Dates: start: 20211222, end: 20211223
  20. FILGRASTIM [Suspect]
     Active Substance: FILGRASTIM
     Dates: start: 20220211, end: 20220224
  21. HYDROXYZINE [Concomitant]
     Active Substance: HYDROXYZINE HYDROCHLORIDE
     Indication: Prophylaxis
     Dates: start: 20211011, end: 20211015
  22. HYDROXYZINE [Concomitant]
     Active Substance: HYDROXYZINE HYDROCHLORIDE
     Dates: start: 20211116, end: 20211119
  23. HYDROXYZINE [Concomitant]
     Active Substance: HYDROXYZINE HYDROCHLORIDE
     Dates: start: 20211213, end: 20211216
  24. HYDROXYZINE [Concomitant]
     Active Substance: HYDROXYZINE HYDROCHLORIDE
     Dates: start: 20220118, end: 20220121
  25. HYDROXYZINE [Concomitant]
     Active Substance: HYDROXYZINE HYDROCHLORIDE
     Dates: start: 20220214, end: 20220217
  26. HYDROXYZINE [Concomitant]
     Active Substance: HYDROXYZINE HYDROCHLORIDE
     Dates: start: 20220322, end: 20220325
  27. ACETAMINOPHEN [Concomitant]
     Active Substance: ACETAMINOPHEN
     Indication: Prophylaxis
     Dates: start: 20211011, end: 20211015
  28. ACETAMINOPHEN [Concomitant]
     Active Substance: ACETAMINOPHEN
     Dates: start: 20211109, end: 20211119
  29. ACETAMINOPHEN [Concomitant]
     Active Substance: ACETAMINOPHEN
     Dates: start: 20211213, end: 20211216
  30. ACETAMINOPHEN [Concomitant]
     Active Substance: ACETAMINOPHEN
     Dates: start: 20220118, end: 20220121
  31. ACETAMINOPHEN [Concomitant]
     Active Substance: ACETAMINOPHEN
     Dates: start: 20220214, end: 20220217
  32. ACETAMINOPHEN [Concomitant]
     Active Substance: ACETAMINOPHEN
     Dates: start: 20220322, end: 20220325
  33. BUPRENORPHINE [Concomitant]
     Active Substance: BUPRENORPHINE
     Indication: Prophylaxis
     Dates: start: 20211116, end: 20211119
  34. BUPRENORPHINE [Concomitant]
     Active Substance: BUPRENORPHINE
     Dates: start: 20211213, end: 20211216
  35. BUPRENORPHINE [Concomitant]
     Active Substance: BUPRENORPHINE
     Dates: start: 20220214, end: 20220217
  36. BUPRENORPHINE [Concomitant]
     Active Substance: BUPRENORPHINE
     Dates: start: 20220322, end: 20220325

REACTIONS (15)
  - Pyrexia [Recovering/Resolving]
  - Device related infection [Recovering/Resolving]
  - Urinary retention [Recovered/Resolved]
  - Staphylococcal infection [Unknown]
  - Abdominal pain [Recovering/Resolving]
  - Pain in extremity [Recovering/Resolving]
  - Peripheral motor neuropathy [Recovered/Resolved]
  - Pyrexia [Recovered/Resolved]
  - Pyrexia [Recovering/Resolving]
  - Pyrexia [Recovered/Resolved]
  - Pyrexia [Recovered/Resolved]
  - Oedema [Recovered/Resolved]
  - Eyelid oedema [Recovered/Resolved]
  - White blood cell count increased [Recovering/Resolving]
  - Growth disorder [Unknown]

NARRATIVE: CASE EVENT DATE: 20211011
